FAERS Safety Report 4733573-X (Version None)
Quarter: 2005Q3

REPORT INFORMATION
  Report Type: 
  Country: None (occurrence: None)
  Receive Date: 20050729
  Receipt Date: 20050509
  Transmission Date: 20060218
  Serious: No
  Sender: FDA-Public Use
  Company Number: COT_0064_2005

PATIENT
  Age: 45 Year
  Sex: Female
  Weight: 65.8 kg

DRUGS (11)
  1. VENTAVIS [Suspect]
     Indication: PULMONARY HYPERTENSION
     Dosage: 5 MCG Q4HR IH
     Route: 055
  2. CELLCEPT [Concomitant]
  3. LASIX [Concomitant]
  4. BENADRYL [Concomitant]
  5. FAMOTIDINE [Concomitant]
  6. PROGRAF [Concomitant]
  7. KLONOPIN [Concomitant]
  8. PREDNISONE [Concomitant]
  9. ACETAMIN [Concomitant]
  10. IMODIUM [Concomitant]
  11. PREDNISONE DOSE PACK [Concomitant]

REACTIONS (1)
  - PRURITUS [None]
